FAERS Safety Report 11857140 (Version 1)
Quarter: 2015Q4

REPORT INFORMATION
  Report Type: Spontaneous
  Country: US (occurrence: None)
  Receive Date: 20151221
  Receipt Date: 20151221
  Transmission Date: 20160305
  Serious: No
  Sender: FDA-Public Use
  Company Number: None

PATIENT
  Age: 49 Year
  Sex: Female
  Weight: 83.92 kg

DRUGS (5)
  1. TOPAMAX [Concomitant]
     Active Substance: TOPIRAMATE
  2. SINGULAIR [Concomitant]
     Active Substance: MONTELUKAST SODIUM
  3. ESTRADIOL. [Suspect]
     Active Substance: ESTRADIOL
     Indication: MENOPAUSE
     Dosage: 1 PATCH, WEEKLY, APPLIED AS MEDICATED PATCH TO SKIN
     Dates: start: 20151210, end: 20151214
  4. PROGESTERONE. [Concomitant]
     Active Substance: PROGESTERONE
  5. FLONASE [Concomitant]
     Active Substance: FLUTICASONE PROPIONATE

REACTIONS (3)
  - Application site pruritus [None]
  - Exfoliative rash [None]
  - Application site rash [None]

NARRATIVE: CASE EVENT DATE: 20151214
